FAERS Safety Report 8810064 (Version 1)
Quarter: 2012Q4

REPORT INFORMATION
  Report Type: 
  Country: JP (occurrence: JP)
  Receive Date: 20120926
  Receipt Date: 20120926
  Transmission Date: 20130627
  Serious: Yes (Other)
  Sender: FDA-Public Use
  Company Number: JP-GLAXOSMITHKLINE-B0832810A

PATIENT
  Sex: Male

DRUGS (5)
  1. PAXIL [Suspect]
     Indication: AUTISM
     Route: 048
  2. RISPERIDONE [Suspect]
     Indication: PRODUCT USED FOR UNKNOWN INDICATION
     Route: 048
     Dates: start: 201209
  3. JZOLOFT [Concomitant]
     Indication: AUTISM
     Route: 048
  4. UNKNOWN DRUG [Concomitant]
     Indication: AUTISM
     Route: 048
  5. BALDEKEN-R [Concomitant]
     Indication: AUTISM
     Route: 048

REACTIONS (7)
  - Mental impairment [Unknown]
  - Restlessness [Unknown]
  - Speech disorder [Unknown]
  - Asthenia [Unknown]
  - Dizziness postural [Unknown]
  - Dizziness [Unknown]
  - Persecutory delusion [Unknown]
